FAERS Safety Report 12884824 (Version 1)
Quarter: 2016Q4

REPORT INFORMATION
  Report Type: Spontaneous
  Country: US (occurrence: US)
  Receive Date: 20161026
  Receipt Date: 20161026
  Transmission Date: 20170207
  Serious: Yes (Other)
  Sender: FDA-Public Use
  Company Number: US-SUN PHARMACEUTICAL INDUSTRIES LTD-2016US-126334

PATIENT
  Sex: Male

DRUGS (1)
  1. EPIVAL [Suspect]
     Active Substance: DIVALPROEX SODIUM
     Indication: PRODUCT USED FOR UNKNOWN INDICATION
     Dosage: UNK
     Route: 065
     Dates: start: 2015

REACTIONS (6)
  - Oromandibular dystonia [Unknown]
  - Musculoskeletal discomfort [Unknown]
  - Speech disorder [Unknown]
  - Neck pain [Unknown]
  - Local swelling [Unknown]
  - Torticollis [Unknown]

NARRATIVE: CASE EVENT DATE: 2016
